FAERS Safety Report 23365608 (Version 1)
Quarter: 2024Q1

REPORT INFORMATION
  Report Type: Spontaneous
  Country: US (occurrence: None)
  Receive Date: 20240103
  Receipt Date: 20240103
  Transmission Date: 20240410
  Serious: Yes (Other)
  Sender: FDA-Public Use
  Company Number: None

PATIENT
  Sex: Male

DRUGS (5)
  1. METHIMAZOLE [Suspect]
     Active Substance: METHIMAZOLE
  2. LOVENOX [Concomitant]
     Active Substance: ENOXAPARIN SODIUM
  3. KEPPRA [Concomitant]
     Active Substance: LEVETIRACETAM
  4. KLONOPIN [Concomitant]
     Active Substance: CLONAZEPAM
  5. MELATONIN [Concomitant]
     Active Substance: MELATONIN

REACTIONS (29)
  - Skin discolouration [None]
  - Pruritus [None]
  - Eructation [None]
  - Feeding disorder [None]
  - Alopecia [None]
  - Dry skin [None]
  - Hypertension [None]
  - Tachycardia [None]
  - Cerebrovascular accident [None]
  - Graves^ disease [None]
  - Diarrhoea [None]
  - Stomatitis [None]
  - Swelling [None]
  - Pain [None]
  - Goitre [None]
  - Goitre [None]
  - Chills [None]
  - Blood glucose decreased [None]
  - Therapy change [None]
  - Rhinovirus infection [None]
  - Flatulence [None]
  - Seizure [None]
  - Vomiting [None]
  - Thrombocytopenia [None]
  - Blood pressure fluctuation [None]
  - Granulocytopenia [None]
  - Bradycardia [None]
  - Blister [None]
  - Myocardial infarction [None]
